FAERS Safety Report 13766857 (Version 12)
Quarter: 2018Q3

REPORT INFORMATION
  Report Type: Spontaneous
  Country: US (occurrence: US)
  Receive Date: 20170719
  Receipt Date: 20180928
  Transmission Date: 20181010
  Serious: Yes (Death, Hospitalization, Other)
  Sender: FDA-Public Use
  Company Number: US-ASTELLAS-2017US028261

PATIENT
  Age: 86 Year
  Sex: Male

DRUGS (1)
  1. XTANDI [Suspect]
     Active Substance: ENZALUTAMIDE
     Indication: PROSTATE CANCER
     Route: 048
     Dates: start: 20170615

REACTIONS (10)
  - Malignant neoplasm progression [Not Recovered/Not Resolved]
  - Blister [Unknown]
  - Cough [Unknown]
  - Acne [Recovering/Resolving]
  - Dysgeusia [Not Recovered/Not Resolved]
  - Death [Fatal]
  - Pulmonary oedema [Unknown]
  - Joint swelling [Unknown]
  - Prostatic specific antigen increased [Not Recovered/Not Resolved]
  - Decreased appetite [Unknown]

NARRATIVE: CASE EVENT DATE: 201707
